FAERS Safety Report 14182822 (Version 1)
Quarter: 2017Q4

REPORT INFORMATION
  Report Type: Other
  Country: US (occurrence: US)
  Receive Date: 20171113
  Receipt Date: 20171113
  Transmission Date: 20180321
  Serious: Yes (Hospitalization)
  Sender: FDA-Public Use
  Company Number: US-VELOXIS PHARMACEUTICALS-2033893

PATIENT
  Age: 57 Year
  Sex: Male

DRUGS (10)
  1. ENVARSUS XR [Suspect]
     Active Substance: TACROLIMUS
     Indication: PROPHYLAXIS AGAINST GRAFT VERSUS HOST DISEASE
  2. ACYCLOVIR. [Concomitant]
     Active Substance: ACYCLOVIR
  3. FLUDARABINE [Concomitant]
     Active Substance: FLUDARABINE PHOSPHATE
  4. CEFTRIAXONE. [Concomitant]
     Active Substance: CEFTRIAXONE
  5. CYCLOPHOSPHAMIDE. [Concomitant]
     Active Substance: CYCLOPHOSPHAMIDE
  6. URSODIOL. [Concomitant]
     Active Substance: URSODIOL
  7. FLUCONAZOLE. [Concomitant]
     Active Substance: FLUCONAZOLE
  8. SIROLIMUS. [Concomitant]
     Active Substance: SIROLIMUS
  9. METOPROLOL. [Concomitant]
     Active Substance: METOPROLOL
  10. METHOTREXATE. [Concomitant]
     Active Substance: METHOTREXATE

REACTIONS (7)
  - Myalgia [Unknown]
  - Intentional product use issue [Unknown]
  - Duodenitis [Recovering/Resolving]
  - Bone pain [Unknown]
  - Oesophageal achalasia [Recovered/Resolved]
  - Pancreatitis [Unknown]
  - Catheter site abscess [Unknown]
